FAERS Safety Report 15006543 (Version 1)
Quarter: 2018Q2

REPORT INFORMATION
  Report Type: Spontaneous
  Country: US (occurrence: US)
  Receive Date: 20180521
  Receipt Date: 20180521
  Transmission Date: 20180711
  Serious: Yes (Hospitalization)
  Sender: FDA-Public Use
  Company Number: None

PATIENT
  Age: 78 Year
  Sex: Female
  Weight: 73.6 kg

DRUGS (8)
  1. COENZYM CYANOCOBALAMIN [Concomitant]
  2. FISH OIL [Concomitant]
     Active Substance: FISH OIL
  3. FE [Concomitant]
     Active Substance: IRON
  4. ALPRAZOLAM. [Concomitant]
     Active Substance: ALPRAZOLAM
  5. ASCORBIC ACID. [Concomitant]
     Active Substance: ASCORBIC ACID
  6. LASIX [Concomitant]
     Active Substance: FUROSEMIDE
  7. WARFARIN [Suspect]
     Active Substance: WARFARIN
     Indication: ATRIAL FIBRILLATION
     Route: 048
  8. VITD3 [Concomitant]

REACTIONS (7)
  - Shock haemorrhagic [None]
  - Hiatus hernia [None]
  - Duodenitis [None]
  - Anaemia [None]
  - Diverticulum [None]
  - Coagulopathy [None]
  - International normalised ratio increased [None]

NARRATIVE: CASE EVENT DATE: 20180305
